FAERS Safety Report 4614085-0 (Version None)
Quarter: 2005Q1

REPORT INFORMATION
  Report Type: 
  Country: None (occurrence: None)
  Receive Date: 20050315
  Receipt Date: 20050302
  Transmission Date: 20050727
  Serious: Yes (Hospitalization)
  Sender: FDA-Public Use
  Company Number: 2005035202

PATIENT
  Age: 21 Year
  Sex: Female

DRUGS (13)
  1. ZIPRASIDONE  (CAPS)  (ZIPRASIDONE) [Suspect]
     Indication: BIPOLAR I DISORDER
     Dosage: 20 MG (20 MG, 1 IN 1 D), ORAL
     Route: 048
  2. SERTRLINE (SERTRALINE) [Suspect]
     Indication: BIPOLAR I DISORDER
     Dosage: 200 MG (QHS),
  3. LITHIUM CARBONATE [Suspect]
     Indication: BIPOLAR I DISORDER
     Dosage: 1200 MG (QD),
  4. CLONAZEPAM [Suspect]
     Indication: BIPOLAR I DISORDER
     Dosage: 2 MG (QID),
  5. FLUOXETINE [Suspect]
     Indication: BIPOLAR I DISORDER
     Dosage: ML
  6. TOPIRAMATE [Suspect]
     Indication: BIPOLAR I DISORDER
  7. RISPERDAL [Concomitant]
  8. VALPROATE SODIUM [Concomitant]
  9. QUETIAPINE FUMARATE [Concomitant]
  10. LAMOTRIGINE [Concomitant]
  11. OXCARBAZEPINE (OXCARBAZEPINE) [Concomitant]
  12. VERAPAMIL [Concomitant]
  13. CITALOPRAM (CITALOPRAM) [Concomitant]

REACTIONS (14)
  - BIPOLAR I DISORDER [None]
  - CONDITION AGGRAVATED [None]
  - DRUG INEFFECTIVE [None]
  - DRUG RESISTANCE [None]
  - MAJOR DEPRESSION [None]
  - MANIA [None]
  - MOOD SWINGS [None]
  - PARAESTHESIA [None]
  - PSYCHOTIC DISORDER [None]
  - SKIN REACTION [None]
  - SPEECH DISORDER [None]
  - SUICIDAL IDEATION [None]
  - TREATMENT NONCOMPLIANCE [None]
  - WEIGHT INCREASED [None]
